FAERS Safety Report 22707493 (Version 9)
Quarter: 2024Q4

REPORT INFORMATION
  Report Type: Spontaneous
  Country: US (occurrence: US)
  Receive Date: 20230714
  Receipt Date: 20241212
  Transmission Date: 20250114
  Serious: No
  Sender: PFIZER
  Company Number: US-PFIZER INC-202300245514

PATIENT
  Age: 13 Year
  Sex: Male
  Weight: 41.73 kg

DRUGS (3)
  1. GENOTROPIN [Suspect]
     Active Substance: SOMATROPIN
     Indication: Growth hormone deficiency
     Dosage: 2.2 MG, EVERY NIGHT
     Dates: start: 202305
  2. GENOTROPIN [Suspect]
     Active Substance: SOMATROPIN
     Dosage: 3 MG, 1X/DAY
     Dates: start: 202305
  3. GENOTROPIN [Suspect]
     Active Substance: SOMATROPIN
     Dosage: UNK
     Dates: end: 202305

REACTIONS (9)
  - Wrong technique in device usage process [Unknown]
  - Device difficult to use [Unknown]
  - Device delivery system issue [Unknown]
  - Device information output issue [Unknown]
  - Incorrect dose administered by device [Unknown]
  - Extra dose administered [Unknown]
  - Device mechanical issue [Unknown]
  - Injury associated with device [Unknown]
  - Drug dose omission by device [Unknown]
